FAERS Safety Report 4755602-X (Version None)
Quarter: 2005Q3

REPORT INFORMATION
  Report Type: 
  Country: None (occurrence: None)
  Receive Date: 20050830
  Receipt Date: 20050526
  Transmission Date: 20060218
  Serious: Yes (Hospitalization)
  Sender: FDA-Public Use
  Company Number: US-BRISTOL-MYERS SQUIBB COMPANY-12984332

PATIENT
  Age: 35 Year
  Sex: Female

DRUGS (7)
  1. ABILIFY [Suspect]
     Indication: MOOD ALTERED
     Dates: start: 20040101
  2. CYTOMEL [Suspect]
     Indication: THYROIDITIS
     Dates: start: 20050301
  3. KLONOPIN [Suspect]
     Indication: ANXIETY
  4. LEXAPRO [Suspect]
     Indication: ANXIETY
     Dates: start: 20030901
  5. LEXAPRO [Suspect]
     Indication: AGGRESSION
     Dates: start: 20030901
  6. LEXAPRO [Suspect]
     Indication: POST-TRAUMATIC STRESS DISORDER
     Dates: start: 20030901
  7. STRATTERA [Concomitant]
     Dates: start: 20030101

REACTIONS (6)
  - ANGER [None]
  - DRUG INTERACTION [None]
  - INTENTIONAL MISUSE [None]
  - IRRITABILITY [None]
  - LETHARGY [None]
  - SUICIDAL IDEATION [None]
